FAERS Safety Report 17306749 (Version 1)
Quarter: 2020Q1

REPORT INFORMATION
  Report Type: Spontaneous
  Country: US (occurrence: US)
  Receive Date: 20200122
  Receipt Date: 20200122
  Transmission Date: 20200409
  Serious: Yes (Hospitalization)
  Sender: FDA-Public Use
  Company Number: None

PATIENT
  Sex: Female

DRUGS (18)
  1. VITD3 [Concomitant]
  2. GLIPIZIDE. [Concomitant]
     Active Substance: GLIPIZIDE
  3. IRON [Concomitant]
     Active Substance: IRON
  4. MOTRIN [Concomitant]
     Active Substance: IBUPROFEN
  5. ENBREL [Suspect]
     Active Substance: ETANERCEPT
     Indication: ARTHROPATHY
     Route: 058
     Dates: start: 20141104
  6. METFORMIN [Concomitant]
     Active Substance: METFORMIN HYDROCHLORIDE
  7. SIMVASTATI N [Concomitant]
  8. MILKTHISTLE [Concomitant]
  9. LABETOLOL [Concomitant]
     Active Substance: LABETALOL HYDROCHLORIDE
  10. PAXIL [Concomitant]
     Active Substance: PAROXETINE HYDROCHLORIDE
  11. SYNTHROID [Concomitant]
     Active Substance: LEVOTHYROXINE SODIUM
  12. ENALAPRIL [Concomitant]
     Active Substance: ENALAPRIL
  13. BACLOFEN. [Concomitant]
     Active Substance: BACLOFEN
  14. MAXZIDE [Concomitant]
     Active Substance: HYDROCHLOROTHIAZIDE\TRIAMTERENE
  15. VICTOZA [Concomitant]
     Active Substance: LIRAGLUTIDE
  16. OMEGA-3 ACIDS [Concomitant]
     Active Substance: OMEGA-3 FATTY ACIDS
  17. ROBAXIN [Concomitant]
     Active Substance: METHOCARBAMOL
  18. OMEPRAZOLE. [Concomitant]
     Active Substance: OMEPRAZOLE

REACTIONS (3)
  - Staphylococcal infection [None]
  - Impaired healing [None]
  - Therapy cessation [None]
